FAERS Safety Report 6716372-9 (Version None)
Quarter: 2010Q2

REPORT INFORMATION
  Report Type: 
  Country: None (occurrence: None)
  Receive Date: 20100507
  Receipt Date: 20100430
  Transmission Date: 20101027
  Serious: Yes (Death, Hospitalization, Other)
  Sender: FDA-Public Use
  Company Number: JP-BAYER-200915026BYL

PATIENT
  Age: 66 Year
  Sex: Male
  Weight: 64 kg

DRUGS (9)
  1. NEXAVAR [Suspect]
     Indication: HEPATIC NEOPLASM MALIGNANT
     Dosage: TOTAL DAILY DOSE: 400 MG  UNIT DOSE: 200 MG
     Route: 048
     Dates: start: 20091116, end: 20091123
  2. OMEPRAL [Concomitant]
     Indication: VARICES OESOPHAGEAL
     Dosage: SICNE BEFORE ADMINISTRATION
     Route: 048
  3. LENDORMIN [Concomitant]
     Dosage: SICNE BEFORE ADMINISTRATION
     Route: 048
  4. LASIX [Concomitant]
     Indication: ASCITES
     Dosage: SICNE BEFORE ADMINISTRATION
     Route: 048
  5. ALDACTONE [Concomitant]
     Indication: ASCITES
     Dosage: SICNE BEFORE ADMINISTRATION
     Route: 048
  6. FUROSEMIDE [Concomitant]
     Dosage: SICNE BEFORE ADMINISTRATION
     Route: 048
  7. K2 CAPSULE [Concomitant]
     Dosage: SICNE BEFORE ADMINISTRATION
     Route: 048
  8. URSO 250 [Concomitant]
     Indication: HEPATIC CIRRHOSIS
     Dosage: SICNE BEFORE ADMINISTRATION
     Route: 048
  9. MAGLAX [Concomitant]
     Indication: CONSTIPATION
     Dosage: SICNE BEFORE ADMINISTRATION
     Route: 048

REACTIONS (7)
  - ALANINE AMINOTRANSFERASE INCREASED [None]
  - ASPARTATE AMINOTRANSFERASE INCREASED [None]
  - C-REACTIVE PROTEIN INCREASED [None]
  - HEPATIC NEOPLASM MALIGNANT [None]
  - HYPONATRAEMIA [None]
  - JAUNDICE [None]
  - PLEURAL EFFUSION [None]
